FAERS Safety Report 9476711 (Version 2)
Quarter: 2013Q3

REPORT INFORMATION
  Report Type: Spontaneous
  Country: US (occurrence: US)
  Receive Date: 20130826
  Receipt Date: 20130826
  Transmission Date: 20140515
  Serious: No
  Sender: FDA-Public Use
  Company Number: US-BRISTOL-MYERS SQUIBB COMPANY-17020868

PATIENT
  Sex: Female

DRUGS (1)
  1. KENALOG-40 INJ [Suspect]
     Dosage: INTRA-ARTICULAR INJECTION,4DOSES EACH 20 MG
     Route: 014
     Dates: start: 20120913

REACTIONS (1)
  - Hypothalamic pituitary adrenal axis suppression [Unknown]
